FAERS Safety Report 25843314 (Version 1)
Quarter: 2025Q3

REPORT INFORMATION
  Report Type: Spontaneous
  Country: US (occurrence: US)
  Receive Date: 20250924
  Receipt Date: 20250924
  Transmission Date: 20251020
  Serious: No
  Sender: SANOFI AVENTIS
  Company Number: US-SA-2025SA284370

PATIENT
  Age: 72 Year
  Sex: Female

DRUGS (9)
  1. DUPIXENT [Suspect]
     Active Substance: DUPILUMAB
     Indication: Urticaria
     Dosage: 300 MG, QOW
     Route: 058
     Dates: start: 20250826
  2. CALCIUM [Concomitant]
     Active Substance: CALCIUM
  3. HYDROXYZINE [Concomitant]
     Active Substance: HYDROXYZINE HYDROCHLORIDE
  4. ALIGN [Concomitant]
     Active Substance: BIFIDOBACTERIUM LONGUM SUBSP. INFANTIS
  5. BIOTIN [Concomitant]
     Active Substance: BIOTIN
  6. ESTRADIOL [Concomitant]
     Active Substance: ESTRADIOL
  7. NITROFURANTOIN [Concomitant]
     Active Substance: NITROFURANTOIN
  8. ROSUVASTATIN [Concomitant]
     Active Substance: ROSUVASTATIN
  9. VESICARE [Concomitant]
     Active Substance: SOLIFENACIN SUCCINATE

REACTIONS (2)
  - Urticaria [Recovering/Resolving]
  - Product use in unapproved indication [Unknown]

NARRATIVE: CASE EVENT DATE: 20250826
